FAERS Safety Report 10870956 (Version 7)
Quarter: 2016Q3

REPORT INFORMATION
  Report Type: Report from Study
  Country: BR (occurrence: BR)
  Receive Date: 20150226
  Receipt Date: 20160822
  Transmission Date: 20161109
  Serious: Yes (Other)
  Sender: FDA-Public Use
  Company Number: PHHY2015BR022511

PATIENT
  Sex: Female
  Weight: 61 kg

DRUGS (5)
  1. INSULIN [Concomitant]
     Active Substance: INSULIN NOS
     Indication: DIABETES MELLITUS
     Dosage: 72 U (42 UNITS IN THE MORNING AND 30 UNITS AT NIGHT)
     Route: 065
  2. METFORMIN [Concomitant]
     Active Substance: METFORMIN HYDROCHLORIDE
     Indication: DIABETES MELLITUS
     Dosage: 3 DF, QD
     Route: 048
     Dates: start: 2005
  3. SANDOSTATIN LAR DEPOT [Suspect]
     Active Substance: OCTREOTIDE ACETATE
     Dosage: 30 MG (1 DF), QMO (EVERY 28 DAYS)
     Route: 030
     Dates: end: 201607
  4. SANDOSTATIN LAR DEPOT [Suspect]
     Active Substance: OCTREOTIDE ACETATE
     Indication: ACROMEGALY
     Dosage: 20 MG (1 DF), QMO
     Route: 030
     Dates: start: 2005, end: 201408
  5. SINVASTATINA [Concomitant]
     Active Substance: SIMVASTATIN
     Indication: PRODUCT USED FOR UNKNOWN INDICATION
     Dosage: 1 DF, QHS
     Route: 048
     Dates: start: 2008

REACTIONS (24)
  - Diabetes mellitus [Unknown]
  - Hypoaesthesia [Not Recovered/Not Resolved]
  - Swelling [Not Recovered/Not Resolved]
  - Memory impairment [Recovered/Resolved]
  - Rhinorrhoea [Recovered/Resolved]
  - Increased viscosity of upper respiratory secretion [Recovered/Resolved]
  - Neoplasm [Not Recovered/Not Resolved]
  - Asthenia [Not Recovered/Not Resolved]
  - Frustration tolerance decreased [Unknown]
  - Feeling abnormal [Unknown]
  - Nasopharyngitis [Unknown]
  - Insomnia [Unknown]
  - Crying [Unknown]
  - Fear [Unknown]
  - Depressed mood [Not Recovered/Not Resolved]
  - Pyrexia [Not Recovered/Not Resolved]
  - Headache [Not Recovered/Not Resolved]
  - Nasal discharge discolouration [Recovered/Resolved]
  - Malaise [Not Recovered/Not Resolved]
  - Blindness [Not Recovered/Not Resolved]
  - Increased bronchial secretion [Recovered/Resolved]
  - Myalgia [Unknown]
  - Pain in extremity [Unknown]
  - Gait disturbance [Unknown]

NARRATIVE: CASE EVENT DATE: 2006
